FAERS Safety Report 5818245-2 (Version None)
Quarter: 2008Q3

REPORT INFORMATION
  Report Type: 
  Country: None (occurrence: None)
  Receive Date: 20080722
  Receipt Date: 20080714
  Transmission Date: 20090109
  Serious: Yes (Other)
  Sender: FDA-Public Use
  Company Number: JP-BAYER-200811557BYL

PATIENT
  Age: 68 Year
  Sex: Male

DRUGS (2)
  1. NEXAVAR [Suspect]
     Indication: RENAL CELL CARCINOMA
     Route: 048
     Dates: start: 20080611
  2. NEXAVAR [Suspect]
     Route: 048

REACTIONS (2)
  - HEPATIC FUNCTION ABNORMAL [None]
  - PALMAR-PLANTAR ERYTHRODYSAESTHESIA SYNDROME [None]
